FAERS Safety Report 5407017-9 (Version None)
Quarter: 2007Q3

REPORT INFORMATION
  Report Type: 
  Country: None (occurrence: None)
  Receive Date: 20070803
  Receipt Date: 20070803
  Transmission Date: 20080115
  Serious: Yes (Hospitalization)
  Sender: FDA-Public Use
  Company Number: None

PATIENT
  Age: 78 Year
  Sex: Male

DRUGS (2)
  1. DIGOXIN [Suspect]
     Indication: ATRIAL FIBRILLATION
     Dosage: 0.25MG EVERY DAY PO
     Route: 048
     Dates: start: 20060427, end: 20070523
  2. DILTIAZEM [Suspect]
     Dosage: 240MG EVERY DAY PO
     Route: 048
     Dates: start: 20060427, end: 20070523

REACTIONS (1)
  - BRADYCARDIA [None]
